FAERS Safety Report 4845993-3 (Version None)
Quarter: 2005Q4

REPORT INFORMATION
  Report Type: 
  Country: None (occurrence: None)
  Receive Date: 20051206
  Receipt Date: 20031229
  Transmission Date: 20060501
  Serious: Yes (Life-Threatening)
  Sender: FDA-Public Use
  Company Number: 200311628JP

PATIENT
  Age: 61 Year
  Sex: Male
  Weight: 55 kg

DRUGS (16)
  1. ARAVA [Suspect]
     Indication: RHEUMATOID ARTHRITIS
     Route: 048
     Dates: start: 20031028, end: 20031030
  2. ARAVA [Suspect]
     Route: 048
     Dates: start: 20031031, end: 20031222
  3. MAGNESIUM OXIDE [Concomitant]
     Indication: ABNORMAL FAECES
     Route: 048
  4. PREDONINE [Concomitant]
     Indication: RHEUMATOID ARTHRITIS
     Route: 048
  5. GASTER [Concomitant]
     Indication: GASTRITIS
     Route: 048
  6. MARZULENE S [Concomitant]
     Indication: GASTRITIS
     Route: 048
  7. FAROM [Concomitant]
     Indication: UPPER RESPIRATORY TRACT INFLAMMATION
     Route: 048
     Dates: end: 20031009
  8. LOXONIN [Concomitant]
     Indication: RHEUMATOID ARTHRITIS
     Route: 048
  9. CYTOTEC [Concomitant]
     Indication: ULCER
     Route: 048
  10. NEUTRAL INSULIN [Concomitant]
     Indication: DIABETES MELLITUS
     Route: 042
  11. RIMATIL [Concomitant]
     Indication: RHEUMATOID ARTHRITIS
     Route: 048
     Dates: end: 20031103
  12. CINAL [Concomitant]
     Indication: HAEMORRHAGIC DIATHESIS
     Route: 048
  13. ADONA [Concomitant]
     Indication: HAEMORRHAGIC DIATHESIS
     Route: 048
     Dates: start: 20031227, end: 20040113
  14. TRANSAMIN [Concomitant]
     Indication: HAEMORRHAGIC DIATHESIS
     Route: 048
     Dates: start: 20031201, end: 20040113
  15. POLARAMINE [Concomitant]
     Indication: DERMATITIS ALLERGIC
     Dates: start: 20031227, end: 20040106
  16. RELIFEN [Concomitant]
     Indication: RHEUMATOID ARTHRITIS
     Route: 048
     Dates: start: 20031227, end: 20040105

REACTIONS (11)
  - ANGIOIMMUNOBLASTIC T-CELL LYMPHOMA [None]
  - BLOOD CREATININE INCREASED [None]
  - BLOOD LACTATE DEHYDROGENASE INCREASED [None]
  - BLOOD POTASSIUM INCREASED [None]
  - BLOOD UREA INCREASED [None]
  - LYMPHOMA [None]
  - PANCYTOPENIA [None]
  - PURPURA [None]
  - RASH [None]
  - THROMBOCYTOPENIA [None]
  - WHITE BLOOD CELL COUNT DECREASED [None]
